FAERS Safety Report 19879772 (Version 1)
Quarter: 2021Q3

REPORT INFORMATION
  Report Type: Spontaneous
  Country: US (occurrence: US)
  Receive Date: 20210924
  Receipt Date: 20210924
  Transmission Date: 20211014
  Serious: No
  Sender: FDA-Public Use
  Company Number: US-009507513-2109USA003586

PATIENT
  Age: 32 Year
  Sex: Female

DRUGS (3)
  1. PRINIVIL [Suspect]
     Active Substance: LISINOPRIL
     Indication: HYPERTENSION
     Dosage: UNK
     Route: 048
  2. HUMALOG [Concomitant]
     Active Substance: INSULIN LISPRO
     Dosage: 5 UNITS THREE TIMES DAILY BEFORE MEALS
  3. NPH INSULIN [Concomitant]
     Active Substance: INSULIN BEEF
     Dosage: 5 UNITS IN THE MORNING; 12 UNITS IN THE AFTERNOON

REACTIONS (1)
  - Maternal exposure during pregnancy [Unknown]
